FAERS Safety Report 7343358-6 (Version None)
Quarter: 2011Q1

REPORT INFORMATION
  Report Type: 
  Country: None (occurrence: None)
  Receive Date: 20110228
  Receipt Date: 20110216
  Transmission Date: 20110831
  Serious: Yes (Hospitalization)
  Sender: FDA-Public Use
  Company Number: 2011SP007324

PATIENT
  Age: 30 Year
  Sex: Female

DRUGS (6)
  1. CORTUCIUD [Concomitant]
  2. CERAZETTE (DESOGESTREL /00754001/) [Suspect]
     Indication: PRODUCT USED FOR UNKNOWN INDICATION
     Dosage: ;PO
     Route: 048
     Dates: start: 20100101
  3. TRAMADOL (OTHER MFR) (TRAMADOL /00599201/) [Suspect]
     Indication: PRODUCT USED FOR UNKNOWN INDICATION
     Dosage: ;PO
     Route: 048
     Dates: start: 20100101
  4. NEXEN (NIMESULIDE /00845801/) [Suspect]
     Indication: PRODUCT USED FOR UNKNOWN INDICATION
     Dosage: ;PO
     Route: 048
     Dates: start: 20100101
  5. RIVOTRIL (CLONAZEPAM) [Suspect]
     Indication: PRODUCT USED FOR UNKNOWN INDICATION
     Dosage: ;PO
     Route: 048
     Dates: start: 20100101
  6. LYRICA [Suspect]
     Dosage: ;PO
     Route: 048
     Dates: start: 20100101

REACTIONS (2)
  - HAEMATOMA [None]
  - FOCAL NODULAR HYPERPLASIA [None]
